FAERS Safety Report 11983446 (Version 1)
Quarter: 2016Q1

REPORT INFORMATION
  Report Type: Spontaneous
  Country: FR (occurrence: FR)
  Receive Date: 20160201
  Receipt Date: 20160201
  Transmission Date: 20160526
  Serious: Yes (Life-Threatening)
  Sender: FDA-Public Use
  Company Number: FR-JNJFOC-20160121020

PATIENT
  Age: 86 Year
  Sex: Female

DRUGS (14)
  1. RISPERDAL [Suspect]
     Active Substance: RISPERIDONE
     Indication: AGITATION
     Route: 048
     Dates: start: 20151124, end: 20151205
  2. SERESTA [Suspect]
     Active Substance: OXAZEPAM
     Indication: AGITATION
     Dosage: ONE TO 3 TABLETS PER DAY
     Route: 048
     Dates: start: 20151130, end: 20151204
  3. VANCOMYCINE SANDOZ [Suspect]
     Active Substance: VANCOMYCIN
     Indication: INFECTION
     Route: 042
     Dates: start: 20151127, end: 20151130
  4. SERESTA [Suspect]
     Active Substance: OXAZEPAM
     Indication: AGGRESSION
     Dosage: ONE TO 3 TABLETS PER DAY
     Route: 048
     Dates: start: 20151130, end: 20151204
  5. MONTELUKAST [Concomitant]
     Active Substance: MONTELUKAST SODIUM
     Route: 065
  6. LASILIX [Suspect]
     Active Substance: FUROSEMIDE
     Indication: PRODUCT USED FOR UNKNOWN INDICATION
     Dosage: INITIATED A FEW MONTHS AGO
     Route: 048
     Dates: end: 20151204
  7. CEFEPIME [Suspect]
     Active Substance: CEFEPIME HYDROCHLORIDE
     Indication: INFECTION
     Route: 042
     Dates: start: 20151127, end: 20151205
  8. GENTAMICINE PANPHARMA [Suspect]
     Active Substance: GENTAMICIN
     Indication: INFECTION
     Route: 042
     Dates: start: 20151127, end: 20151127
  9. CALCIPARINE [Concomitant]
     Active Substance: HEPARIN CALCIUM
     Route: 065
  10. TRANXENE T-TAB [Suspect]
     Active Substance: CLORAZEPATE DIPOTASSIUM
     Indication: AGGRESSION
     Route: 048
     Dates: start: 20151204, end: 20151204
  11. TRANXENE T-TAB [Suspect]
     Active Substance: CLORAZEPATE DIPOTASSIUM
     Indication: AGITATION
     Route: 048
     Dates: start: 20151204, end: 20151204
  12. TARDYFERON [Concomitant]
     Active Substance: FERROUS SULFATE\FOLIC ACID
     Route: 065
  13. RISPERDAL [Suspect]
     Active Substance: RISPERIDONE
     Indication: AGGRESSION
     Route: 048
     Dates: start: 20151124, end: 20151205
  14. MIANSERINE ARROW [Suspect]
     Active Substance: MIANSERIN HYDROCHLORIDE
     Indication: PRODUCT USED FOR UNKNOWN INDICATION
     Route: 048
     Dates: end: 20151203

REACTIONS (2)
  - Acute kidney injury [Recovered/Resolved]
  - Coma [Recovered/Resolved]

NARRATIVE: CASE EVENT DATE: 20151205
